FAERS Safety Report 17813494 (Version 2)
Quarter: 2020Q2

REPORT INFORMATION
  Report Type: Not Available
  Country: US (occurrence: US)
  Receive Date: 20200521
  Receipt Date: 20200623
  Transmission Date: 20200714
  Serious: Yes (Hospitalization)
  Sender: FDA-Public Use
  Company Number: US-NEUROCRINE BIOSCIENCES INC.-2020NBI01568

PATIENT
  Age: 55 Year
  Sex: Female

DRUGS (5)
  1. ABILIFY [Suspect]
     Active Substance: ARIPIPRAZOLE
     Indication: PRODUCT USED FOR UNKNOWN INDICATION
     Dosage: SHORT TRIAL
  2. BENZTROPINE. [Concomitant]
     Active Substance: BENZTROPINE
     Route: 048
  3. CLONAZEPAM. [Concomitant]
     Active Substance: CLONAZEPAM
     Dosage: AT BEDTIME, VARIABLE USE
     Route: 048
     Dates: start: 202003
  4. RISPERDAL [Concomitant]
     Active Substance: RISPERIDONE
     Dosage: SEVERAL YEARS
     Route: 048
  5. INGREZZA [Suspect]
     Active Substance: VALBENAZINE
     Indication: TARDIVE DYSKINESIA
     Dosage: AT BEDTIME
     Route: 048

REACTIONS (7)
  - Dysphagia [Recovering/Resolving]
  - Drug ineffective [Unknown]
  - Extrapyramidal disorder [Recovering/Resolving]
  - Asthenia [Recovering/Resolving]
  - Hypokinesia [Recovering/Resolving]
  - Musculoskeletal stiffness [Recovered/Resolved]
  - Tardive dyskinesia [Recovering/Resolving]

NARRATIVE: CASE EVENT DATE: 202002
